FAERS Safety Report 8202082-8 (Version None)
Quarter: 2012Q1

REPORT INFORMATION
  Report Type: 
  Country: None (occurrence: None)
  Receive Date: 20120312
  Receipt Date: 20120228
  Transmission Date: 20120608
  Serious: Yes (Hospitalization, Other)
  Sender: FDA-Public Use
  Company Number: US-MERCK-1112USA01238

PATIENT
  Age: 62 Year
  Sex: Female
  Weight: 70 kg

DRUGS (12)
  1. SINGULAIR [Concomitant]
     Indication: HYPERSENSITIVITY
     Route: 048
     Dates: start: 20000101
  2. FEXOFENADINE HYDROCHLORIDE [Concomitant]
     Indication: SINUS DISORDER
     Route: 048
     Dates: start: 20000101
  3. FOSAMAX [Suspect]
     Route: 048
     Dates: start: 20010301, end: 20080201
  4. PANTOPRAZOLE [Concomitant]
     Indication: GASTRIC DISORDER
     Route: 048
  5. LEVOTHROID [Concomitant]
     Indication: HYPOTHYROIDISM
     Route: 048
     Dates: start: 20000101
  6. [THERAPY UNSPECIFIED] [Concomitant]
     Indication: BLOOD PRESSURE
     Route: 048
     Dates: start: 20000101
  7. FOSAMAX [Suspect]
     Indication: OSTEOPENIA
     Route: 048
     Dates: start: 20000406, end: 20010328
  8. ALENDRONATE SODIUM [Suspect]
     Indication: OSTEOPOROSIS
     Route: 048
     Dates: start: 20080228, end: 20080101
  9. FOSAMAX [Suspect]
     Indication: OSTEOPOROSIS
     Route: 048
     Dates: start: 20000406, end: 20010328
  10. ALENDRONATE SODIUM [Suspect]
     Route: 065
     Dates: start: 20090120, end: 20090101
  11. FOSAMAX [Suspect]
     Route: 048
     Dates: start: 20010301, end: 20080201
  12. NEUROTIN (ACETYLCARNITINE HYDROCHLORIDE) [Concomitant]
     Indication: RESTLESS LEGS SYNDROME
     Route: 048
     Dates: start: 20000101

REACTIONS (42)
  - ARTHRITIS [None]
  - TENDONITIS [None]
  - EPISTAXIS [None]
  - PALPITATIONS [None]
  - WRIST FRACTURE [None]
  - OCCULT BLOOD POSITIVE [None]
  - ANAL FISTULA [None]
  - PARASPINAL ABSCESS [None]
  - STAPHYLOCOCCAL INFECTION [None]
  - PAIN IN EXTREMITY [None]
  - HYPOAESTHESIA [None]
  - LIGAMENT SPRAIN [None]
  - SOFT TISSUE MASS [None]
  - GASTROOESOPHAGEAL REFLUX DISEASE [None]
  - FUNGAL INFECTION [None]
  - SINUS CONGESTION [None]
  - DEVICE FAILURE [None]
  - IDIOPATHIC THROMBOCYTOPENIC PURPURA [None]
  - GALLBLADDER DISORDER [None]
  - COMPRESSION FRACTURE [None]
  - GOUT [None]
  - DIARRHOEA [None]
  - ERUCTATION [None]
  - ASTHMA [None]
  - ROTATOR CUFF SYNDROME [None]
  - ABDOMINAL PAIN [None]
  - PAIN IN JAW [None]
  - STITCH ABSCESS [None]
  - HERPES ZOSTER [None]
  - FALL [None]
  - CARPAL TUNNEL SYNDROME [None]
  - FEMUR FRACTURE [None]
  - CHRONIC OBSTRUCTIVE PULMONARY DISEASE [None]
  - OSTEOMYELITIS [None]
  - PERIPROSTHETIC FRACTURE [None]
  - HYPERTENSIVE HEART DISEASE [None]
  - STRESS URINARY INCONTINENCE [None]
  - PARAESTHESIA [None]
  - OSTEOARTHRITIS [None]
  - RHINITIS ALLERGIC [None]
  - LIMB INJURY [None]
  - PLATELET DISORDER [None]
